FAERS Safety Report 20400775 (Version 2)
Quarter: 2022Q1

REPORT INFORMATION
  Report Type: Spontaneous
  Country: US (occurrence: US)
  Receive Date: 20220131
  Receipt Date: 20220201
  Transmission Date: 20220423
  Serious: No
  Sender: FDA-Public Use
  Company Number: US-ABBVIE-21K-163-3945142-00

PATIENT

DRUGS (1)
  1. HUMIRA [Suspect]
     Active Substance: ADALIMUMAB
     Indication: Crohn^s disease
     Route: 058

REACTIONS (7)
  - Bedridden [Unknown]
  - Feeling abnormal [Unknown]
  - Fatigue [Unknown]
  - Speech disorder [Unknown]
  - Mental impairment [Unknown]
  - Asthenia [Unknown]
  - Depression [Unknown]
